FAERS Safety Report 7963107-8 (Version None)
Quarter: 2011Q4

REPORT INFORMATION
  Report Type: 
  Country: None (occurrence: None)
  Receive Date: 20111207
  Receipt Date: 20111202
  Transmission Date: 20120403
  Serious: Yes (Hospitalization, Other)
  Sender: FDA-Public Use
  Company Number: US-ROCHE-724873

PATIENT
  Sex: Male

DRUGS (1)
  1. ACCUTANE [Suspect]
     Indication: ACNE
     Route: 048
     Dates: start: 20010823, end: 20020101

REACTIONS (12)
  - GASTROINTESTINAL INJURY [None]
  - MENTAL DISORDER [None]
  - COLITIS ULCERATIVE [None]
  - INFLAMMATORY BOWEL DISEASE [None]
  - BACK PAIN [None]
  - DEPRESSION [None]
  - ANEURYSMAL BONE CYST [None]
  - SMALL INTESTINAL OBSTRUCTION [None]
  - INTESTINAL OBSTRUCTION [None]
  - SUICIDAL IDEATION [None]
  - PANCREATITIS [None]
  - POST-TRAUMATIC STRESS DISORDER [None]
